FAERS Safety Report 9856272 (Version 1)
Quarter: 2014Q1

REPORT INFORMATION
  Report Type: Spontaneous
  Country: GR (occurrence: GR)
  Receive Date: 20140130
  Receipt Date: 20140130
  Transmission Date: 20141002
  Serious: Yes (Other)
  Sender: FDA-Public Use
  Company Number: PHHY2014GR009940

PATIENT
  Age: 64 Year
  Sex: Male

DRUGS (2)
  1. STALEVO [Suspect]
     Dosage: UNK UKN, UNK
  2. MIRAPEXIN [Concomitant]
     Dosage: UNK UKN, UNK

REACTIONS (2)
  - Bladder cancer [Recovered/Resolved]
  - Haematuria [Recovered/Resolved]
